FAERS Safety Report 8566932-8 (Version None)
Quarter: 2012Q3

REPORT INFORMATION
  Report Type: 
  Country: None (occurrence: None)
  Receive Date: 20120803
  Receipt Date: 20110927
  Transmission Date: 20120928
  Serious: No
  Sender: FDA-Public Use
  Company Number: US-ABBOTT-11P-163-0859285-00

PATIENT
  Sex: Female
  Weight: 67.192 kg

DRUGS (3)
  1. NIASPAN [Suspect]
     Indication: DRUG THERAPY
     Dosage: IN AM
     Dates: start: 20110601
  2. LIPITOR [Concomitant]
     Indication: BLOOD TRIGLYCERIDES INCREASED
  3. NIASPAN [Suspect]
     Indication: BLOOD TRIGLYCERIDES INCREASED
     Dosage: IN AM
     Dates: start: 20090101, end: 20110601

REACTIONS (1)
  - FLUSHING [None]
